FAERS Safety Report 17256634 (Version 1)
Quarter: 2020Q1

REPORT INFORMATION
  Report Type: Spontaneous
  Country: US (occurrence: US)
  Receive Date: 20200110
  Receipt Date: 20200110
  Transmission Date: 20200409
  Serious: Yes (Other)
  Sender: FDA-Public Use
  Company Number: US-TEVA-2020-US-1167370

PATIENT
  Sex: Male
  Weight: 106 kg

DRUGS (2)
  1. AUSTEDO [Suspect]
     Active Substance: DEUTETRABENAZINE
     Dosage: 12 MILLIGRAM DAILY;
     Route: 048
  2. AUSTEDO [Suspect]
     Active Substance: DEUTETRABENAZINE
     Indication: TARDIVE DYSKINESIA
     Dosage: STARTED AUSTEDO
     Route: 048
     Dates: start: 2019

REACTIONS (2)
  - Depression [Unknown]
  - Dementia [Unknown]
